FAERS Safety Report 25591399 (Version 3)
Quarter: 2025Q3

REPORT INFORMATION
  Report Type: Spontaneous
  Country: KR (occurrence: KR)
  Receive Date: 20250722
  Receipt Date: 20250909
  Transmission Date: 20251020
  Serious: No
  Sender: PFIZER
  Company Number: KR-PFIZER INC-PV202500085728

PATIENT

DRUGS (1)
  1. GENOTROPIN [Suspect]
     Active Substance: SOMATROPIN
     Indication: Short stature

REACTIONS (5)
  - Drug dose omission by device [Unknown]
  - Device use error [Unknown]
  - Device information output issue [Unknown]
  - Device delivery system issue [Unknown]
  - Product prescribing error [Unknown]
